FAERS Safety Report 9063783 (Version 1)
Quarter: 2013Q1

REPORT INFORMATION
  Report Type: Report from Study
  Country: US (occurrence: US)
  Receive Date: 20130131
  Receipt Date: 20130131
  Transmission Date: 20140127
  Serious: No
  Sender: FDA-Public Use
  Company Number: US-ABBOTT-12P-163-1017769-00

PATIENT
  Age: 34 Year
  Sex: Female

DRUGS (5)
  1. HUMIRA [Suspect]
     Indication: COLITIS ULCERATIVE
     Dosage: INITIAL DOSE
     Dates: start: 20121130
  2. PREDNISONE [Concomitant]
     Indication: COLITIS ULCERATIVE
     Dosage: 20MG DAILY
  3. OMEPRAZOLE [Concomitant]
     Indication: GASTROOESOPHAGEAL REFLUX DISEASE
     Dosage: 40MG 1 CAP DAILY
  4. CLONAZEPAM [Concomitant]
     Indication: COLITIS ULCERATIVE
  5. CHLORDIAZEPOXIDE CLIDINIUM [Concomitant]
     Indication: ABDOMINAL PAIN
     Dosage: AT BEDTIME

REACTIONS (1)
  - Oropharyngeal pain [Not Recovered/Not Resolved]
